FAERS Safety Report 5593228-9 (Version None)
Quarter: 2008Q1

REPORT INFORMATION
  Report Type: 
  Country: None (occurrence: None)
  Receive Date: 20080116
  Receipt Date: 20080111
  Transmission Date: 20080703
  Serious: Yes (Hospitalization)
  Sender: FDA-Public Use
  Company Number: FR-AVENTIS-200810122FR

PATIENT
  Age: 55 Year
  Sex: Male

DRUGS (12)
  1. LANTUS [Suspect]
     Indication: DIABETES MELLITUS
     Route: 058
  2. LASILIX                            /00032601/ [Suspect]
     Dosage: DOSE: 40-20-20
     Route: 048
  3. TRIATEC                            /00885601/ [Suspect]
     Route: 048
  4. FLU VACCINE [Suspect]
     Route: 058
     Dates: start: 20071021, end: 20071021
  5. TAHOR [Suspect]
     Route: 048
  6. FUCIDINE CAP [Suspect]
     Route: 048
  7. BACTRIM [Suspect]
     Route: 048
  8. INEXIUM [Suspect]
     Route: 048
  9. ACTISKENAN [Suspect]
     Route: 048
  10. STILNOX                            /00914901/ [Suspect]
     Route: 048
  11. PREVISCAN                          /00789001/ [Suspect]
     Route: 048
  12. SERESTA [Suspect]
     Route: 048

REACTIONS (2)
  - MYALGIA [None]
  - RHABDOMYOLYSIS [None]
